FAERS Safety Report 9405034 (Version 1)
Quarter: 2013Q3

REPORT INFORMATION
  Report Type: Spontaneous
  Country: US (occurrence: US)
  Receive Date: 20130717
  Receipt Date: 20130717
  Transmission Date: 20140515
  Serious: Yes (Hospitalization)
  Sender: FDA-Public Use
  Company Number: US-BRISTOL-MYERS SQUIBB COMPANY-18833277

PATIENT
  Age: 63 Year
  Sex: Male
  Weight: 97.5 kg

DRUGS (1)
  1. YERVOY [Suspect]
     Indication: MALIGNANT MELANOMA
     Dosage: LAST TREATMENT ON 08MAR2013?TOTAL OF THREE TREATMENTS
     Dates: start: 20130215

REACTIONS (1)
  - Diarrhoea [Unknown]
